FAERS Safety Report 9525834 (Version 1)
Quarter: 2013Q3

REPORT INFORMATION
  Report Type: Spontaneous
  Country: US (occurrence: None)
  Receive Date: 20130913
  Receipt Date: 20130913
  Transmission Date: 20140515
  Serious: Yes (Other)
  Sender: FDA-Public Use
  Company Number: None

PATIENT
  Age: 47 Year
  Sex: Female

DRUGS (1)
  1. TRAMADOL [Suspect]
     Indication: PROCEDURAL PAIN
     Dosage: 4-6 HR
     Route: 048

REACTIONS (3)
  - Vertigo [None]
  - Nausea [None]
  - Dizziness [None]
